FAERS Safety Report 15654450 (Version 2)
Quarter: 2018Q4

REPORT INFORMATION
  Report Type: Report from Study
  Country: None (occurrence: US)
  Receive Date: 20181126
  Receipt Date: 20181207
  Transmission Date: 20190205
  Serious: Yes (Other)
  Sender: FDA-Public Use
  Company Number: US-ABBVIE-18K-163-2561851-00

PATIENT
  Age: 58 Year
  Sex: Male

DRUGS (2)
  1. REMICADE [Suspect]
     Active Substance: INFLIXIMAB
     Indication: PSORIATIC ARTHROPATHY
     Route: 065
  2. HUMIRA [Suspect]
     Active Substance: ADALIMUMAB
     Indication: PSORIATIC ARTHROPATHY
     Route: 058
     Dates: start: 20161209, end: 20161216

REACTIONS (6)
  - Suicidal ideation [Unknown]
  - Depression [Unknown]
  - Mood swings [Recovered/Resolved]
  - Drug ineffective [Unknown]
  - Anger [Unknown]
  - Nightmare [Unknown]

NARRATIVE: CASE EVENT DATE: 20161209
